FAERS Safety Report 8284450-1 (Version None)
Quarter: 2012Q2

REPORT INFORMATION
  Report Type: 
  Country: None (occurrence: None)
  Receive Date: 20120413
  Receipt Date: 20111101
  Transmission Date: 20120825
  Serious: No
  Sender: FDA-Public Use
  Company Number: US-ASTRAZENECA-2011SE66015

PATIENT
  Age: 53 Year
  Sex: Male
  Weight: 89.8 kg

DRUGS (10)
  1. OMEPRAZOLE [Suspect]
     Route: 048
  2. FISH OIL [Concomitant]
     Indication: MEDICAL DIET
  3. MULTI-VITAMINS [Concomitant]
     Indication: MEDICAL DIET
  4. ALLIUM SATIVUM [Concomitant]
     Indication: PHYTOTHERAPY
  5. SERENOA REPENS [Concomitant]
     Indication: PROSTATIC DISORDER
  6. Z-BEC [Concomitant]
     Indication: PROSTATIC DISORDER
  7. NEXIUM [Suspect]
     Indication: GASTROOESOPHAGEAL REFLUX DISEASE
     Route: 048
     Dates: end: 20110911
  8. VALSARTAN [Concomitant]
     Indication: HYPERTENSION
  9. ASPIRIN [Concomitant]
     Indication: PROPHYLAXIS
  10. HUMIRA [Suspect]
     Indication: CROHN'S DISEASE
     Route: 058
     Dates: start: 20110201

REACTIONS (6)
  - DRY THROAT [None]
  - PHARYNGEAL ERYTHEMA [None]
  - HEPATIC STEATOSIS [None]
  - OROPHARYNGEAL PAIN [None]
  - CHEST PAIN [None]
  - MUCOSAL DISCOLOURATION [None]
